FAERS Safety Report 4751443-8 (Version None)
Quarter: 2005Q3

REPORT INFORMATION
  Report Type: 
  Country: None (occurrence: None)
  Receive Date: 20050824
  Receipt Date: 20050520
  Transmission Date: 20060218
  Serious: Yes (Disabling, Other)
  Sender: FDA-Public Use
  Company Number: PHNR2005AU00898

PATIENT
  Age: 51 Year
  Sex: Female

DRUGS (5)
  1. ZOMETA [Suspect]
     Indication: METASTASES TO BONE
     Dosage: 4 MG, QMO
     Dates: start: 20031015, end: 20050215
  2. AREDIA [Suspect]
     Dosage: UNK, UNK
     Dates: start: 20030501, end: 20031014
  3. ARIMIDEX [Suspect]
     Indication: BREAST CANCER
     Dosage: UNK, UNK
     Route: 048
     Dates: start: 20021015
  4. XELODA [Concomitant]
     Dates: start: 20040601, end: 20050201
  5. TAXOTERE [Suspect]
     Indication: BREAST CANCER
     Dosage: 3 WEEKLY DOSING
     Dates: start: 20031215, end: 20040515

REACTIONS (5)
  - ACTINOMYCOSIS [None]
  - BONE INFECTION [None]
  - FISTULA [None]
  - OSTEONECROSIS [None]
  - TOOTH EXTRACTION [None]
